FAERS Safety Report 19193665 (Version 1)
Quarter: 2021Q2

REPORT INFORMATION
  Report Type: Spontaneous
  Country: US (occurrence: US)
  Receive Date: 20210428
  Receipt Date: 20210428
  Transmission Date: 20210717
  Serious: Yes (Hospitalization)
  Sender: FDA-Public Use
  Company Number: None

PATIENT
  Sex: Female

DRUGS (3)
  1. REPATHA [Suspect]
     Active Substance: EVOLOCUMAB
     Indication: TYPE V HYPERLIPIDAEMIA
     Dosage: ?          OTHER FREQUENCY:EVERY TWO WEEKS;?
     Route: 058
     Dates: start: 20190503
  2. PREDNISONE, CLOPIDOGREL [Concomitant]
  3. METHOTREXATE, ALENDRONATE, METOPROLOL TARTRATE, JANUVIA, ELIQUIS [Concomitant]

REACTIONS (2)
  - Product dose omission issue [None]
  - Hospitalisation [None]
